FAERS Safety Report 4892258-X (Version None)
Quarter: 2006Q1

REPORT INFORMATION
  Report Type: 
  Country: None (occurrence: None)
  Receive Date: 20060125
  Receipt Date: 20060125
  Transmission Date: 20060701
  Serious: No
  Sender: FDA-Public Use
  Company Number: None

PATIENT
  Age: 33 Year
  Sex: Male
  Weight: 106.5953 kg

DRUGS (1)
  1. AVELOX [Suspect]
     Indication: SINUSITIS
     Dosage: 400 MG 1 PER DAY PO
     Route: 048
     Dates: start: 20060121, end: 20060123

REACTIONS (6)
  - ERYTHEMA [None]
  - HYPOAESTHESIA [None]
  - MUSCLE TWITCHING [None]
  - PAIN [None]
  - PAIN IN EXTREMITY [None]
  - SKIN EXFOLIATION [None]
